FAERS Safety Report 18072093 (Version 1)
Quarter: 2020Q3

REPORT INFORMATION
  Report Type: Spontaneous
  Country: US (occurrence: US)
  Receive Date: 20200725
  Receipt Date: 20200725
  Transmission Date: 20201103
  Serious: No
  Sender: FDA-Public Use
  Company Number: None

PATIENT
  Age: 78 Year
  Sex: Male
  Weight: 64.35 kg

DRUGS (6)
  1. FLUDROCORTISONE 0.1 MG TABLET (GENERIC FOR: FLORINEF) [Suspect]
     Active Substance: FLUDROCORTISONE ACETATE
     Indication: BLOOD PRESSURE MEASUREMENT
     Dosage: ?          QUANTITY:90 TABLET(S);?
     Route: 048
  2. STOOL SOFTNER LAXATIVE [Concomitant]
  3. FETANYL [Concomitant]
  4. ZOFRAN [Concomitant]
     Active Substance: ONDANSETRON HYDROCHLORIDE
  5. MIRALAX [Concomitant]
     Active Substance: POLYETHYLENE GLYCOL 3350
  6. CARDIZEM ER [Concomitant]
     Active Substance: DILTIAZEM HYDROCHLORIDE

REACTIONS (3)
  - Peripheral swelling [None]
  - Erythema [None]
  - Fatigue [None]

NARRATIVE: CASE EVENT DATE: 20200725
